FAERS Safety Report 21663961 (Version 8)
Quarter: 2023Q2

REPORT INFORMATION
  Report Type: Report from Study
  Country: BR (occurrence: BR)
  Receive Date: 20221130
  Receipt Date: 20230526
  Transmission Date: 20230721
  Serious: Yes (Other)
  Sender: FDA-Public Use
  Company Number: BR-JNJFOC-20221153098

PATIENT
  Age: 41 Year
  Sex: Female

DRUGS (2)
  1. SIMPONI [Suspect]
     Active Substance: GOLIMUMAB
     Indication: Ankylosing spondylitis
     Route: 058
     Dates: start: 20201005, end: 20221121
  2. SIMPONI [Suspect]
     Active Substance: GOLIMUMAB

REACTIONS (5)
  - Ankylosing spondylitis [Recovering/Resolving]
  - Influenza [Unknown]
  - Drug ineffective [Unknown]
  - Fatigue [Recovering/Resolving]
  - Treatment noncompliance [Unknown]
